FAERS Safety Report 7031016-7 (Version None)
Quarter: 2010Q4

REPORT INFORMATION
  Report Type: 
  Country: None (occurrence: None)
  Receive Date: 20101006
  Receipt Date: 20100925
  Transmission Date: 20110411
  Serious: Yes (Hospitalization, Other)
  Sender: FDA-Public Use
  Company Number: US-AMGEN-KDL442595

PATIENT
  Sex: Male
  Weight: 89.9 kg

DRUGS (9)
  1. PROCRIT [Suspect]
     Indication: ANAEMIA
     Route: 058
  2. ACTOS [Concomitant]
     Route: 048
  3. COZAAR [Concomitant]
     Route: 048
  4. FOLIC ACID [Concomitant]
     Route: 048
  5. IRON [Concomitant]
     Route: 048
  6. LIPITOR [Concomitant]
     Route: 048
  7. CILOSTAZOL [Concomitant]
     Route: 048
  8. GEMFIBROZIL [Concomitant]
     Route: 048
  9. AMLODIPINE [Concomitant]
     Route: 048

REACTIONS (4)
  - ABDOMINAL PAIN UPPER [None]
  - DIARRHOEA [None]
  - HOSPITALISATION [None]
  - LEG AMPUTATION [None]
